FAERS Safety Report 22016236 (Version 1)
Quarter: 2023Q1

REPORT INFORMATION
  Report Type: Spontaneous
  Country: US (occurrence: US)
  Receive Date: 20230221
  Receipt Date: 20230221
  Transmission Date: 20230417
  Serious: No
  Sender: FDA-Public Use
  Company Number: US-SA-SAC20230217001124

PATIENT
  Age: 5 Year
  Sex: Male
  Weight: 19.8 kg

DRUGS (1)
  1. DUPIXENT [Suspect]
     Active Substance: DUPILUMAB
     Indication: Dermatitis atopic
     Dosage: 300MG UNDER THE SKIN FREQUENCY: EVERY 4 WEEKS
     Route: 058
     Dates: start: 202211

REACTIONS (3)
  - Conjunctivitis [Recovered/Resolved]
  - Rash [Recovered/Resolved]
  - Therapeutic response shortened [Unknown]
